FAERS Safety Report 9782982 (Version 1)
Quarter: 2013Q4

REPORT INFORMATION
  Report Type: Spontaneous
  Country: US (occurrence: None)
  Receive Date: 20131223
  Receipt Date: 20131223
  Transmission Date: 20140711
  Serious: Yes (Hospitalization)
  Sender: FDA-Public Use
  Company Number: EUS-2011-00765

PATIENT
  Age: 10 Year
  Sex: Female

DRUGS (1)
  1. ERWINASE (ASPARAGINASE) [Suspect]
     Indication: ACUTE LYMPHOCYTIC LEUKAEMIA

REACTIONS (5)
  - Hypersensitivity [None]
  - Tachycardia [None]
  - Pyrexia [None]
  - Aspartate aminotransferase increased [None]
  - Alanine aminotransferase increased [None]
